FAERS Safety Report 23164338 (Version 1)
Quarter: 2023Q4

REPORT INFORMATION
  Report Type: Spontaneous
  Country: US (occurrence: None)
  Receive Date: 20231108
  Receipt Date: 20231108
  Transmission Date: 20240110
  Serious: Yes (Disabling, Other)
  Sender: FDA-Public Use
  Company Number: None

PATIENT
  Age: 41 Year
  Sex: Female
  Weight: 99.9 kg

DRUGS (3)
  1. KETAMINE [Suspect]
     Active Substance: KETAMINE
     Indication: Depression
  2. Xerelto- 10 mg [Concomitant]
  3. VITAMIN D [Concomitant]
     Active Substance: VITAMIN D NOS

REACTIONS (5)
  - Tinnitus [None]
  - Brain injury [None]
  - Amnesia [None]
  - Agitation [None]
  - Cognitive disorder [None]

NARRATIVE: CASE EVENT DATE: 20221018
